FAERS Safety Report 8561421-9 (Version None)
Quarter: 2012Q3

REPORT INFORMATION
  Report Type: 
  Country: None (occurrence: None)
  Receive Date: 20120802
  Receipt Date: 20120723
  Transmission Date: 20120928
  Serious: Yes (Death)
  Sender: FDA-Public Use
  Company Number: US-GLAXOSMITHKLINE-A0987930A

PATIENT
  Age: 61 Year
  Sex: Female
  Weight: 90.9 kg

DRUGS (6)
  1. HYDROCHLOROTHIAZIDE [Concomitant]
  2. AVANDAMET [Suspect]
     Indication: DIABETES MELLITUS
     Dosage: 1TAB TWICE PER DAY
     Route: 048
     Dates: start: 20061214, end: 20090130
  3. PROZAC [Concomitant]
  4. NADOLOL [Concomitant]
  5. AVANDIA [Suspect]
     Indication: DIABETES MELLITUS
     Dosage: 4MG TWICE PER DAY
     Route: 048
  6. CATAPRES [Concomitant]

REACTIONS (6)
  - HAEMORRHAGE CORONARY ARTERY [None]
  - MYOCARDIAL ISCHAEMIA [None]
  - ACUTE PULMONARY OEDEMA [None]
  - HYPERTROPHIC CARDIOMYOPATHY [None]
  - ARRHYTHMIA [None]
  - ACUTE MYOCARDIAL INFARCTION [None]
